FAERS Safety Report 6207762-1 (Version None)
Quarter: 2009Q2

REPORT INFORMATION
  Report Type: 
  Country: None (occurrence: None)
  Receive Date: 20090528
  Receipt Date: 20090522
  Transmission Date: 20091009
  Serious: Yes (Hospitalization)
  Sender: FDA-Public Use
  Company Number: US-AMGEN-QUU342237

PATIENT
  Sex: Female
  Weight: 71.3 kg

DRUGS (5)
  1. ENBREL [Suspect]
     Indication: DRUG USE FOR UNKNOWN INDICATION
     Route: 058
     Dates: start: 20080901, end: 20090404
  2. FLEXERIL [Concomitant]
     Route: 048
     Dates: start: 20080901, end: 20090424
  3. TYLENOL W/ CODEINE [Concomitant]
     Route: 048
     Dates: start: 20080901, end: 20090424
  4. VICODIN [Concomitant]
     Route: 048
  5. VITAMIN TAB [Concomitant]
     Dates: start: 20090310, end: 20090424

REACTIONS (1)
  - ABORTION SPONTANEOUS [None]
